FAERS Safety Report 23533297 (Version 5)
Quarter: 2024Q3

REPORT INFORMATION
  Report Type: Report from Study
  Country: ES (occurrence: ES)
  Receive Date: 20240216
  Receipt Date: 20240828
  Transmission Date: 20241017
  Serious: No
  Sender: TRAVERE THERAPEUTICS
  Company Number: TRAVERE LTD

PATIENT
  Age: 45 Year
  Sex: Female

DRUGS (4)
  1. FILSPARI [Suspect]
     Active Substance: SPARSENTAN
     Indication: IgA nephropathy
     Route: 050
     Dates: end: 20240201
  2. CALCIFEDIOL [Concomitant]
     Active Substance: CALCIFEDIOL
     Indication: Chronic kidney disease
     Route: 050
  3. DAPAGLIFLOZIN [Concomitant]
     Active Substance: DAPAGLIFLOZIN
     Indication: Chronic kidney disease
     Route: 050
     Dates: start: 20230518
  4. ENALAPRIL [Concomitant]
     Active Substance: ENALAPRIL
     Dosage: LOW DOSE

REACTIONS (3)
  - Weight decreased [Unknown]
  - Hypotension [Unknown]
  - Hepatic enzyme increased [Recovered/Resolved]

NARRATIVE: CASE EVENT DATE: 20240101
